FAERS Safety Report 14027940 (Version 3)
Quarter: 2018Q1

REPORT INFORMATION
  Report Type: Spontaneous
  Country: GB (occurrence: GB)
  Receive Date: 20170929
  Receipt Date: 20180202
  Transmission Date: 20180508
  Serious: Yes (Congenital Anomaly, Other)
  Sender: FDA-Public Use
  Company Number: GB-NOVOPROD-564973

PATIENT
  Sex: Female
  Weight: 2.91 kg

DRUGS (7)
  1. SERTRALINE [Concomitant]
     Active Substance: SERTRALINE HYDROCHLORIDE
     Dosage: 150 MG, QD
     Route: 064
  2. HUMALOG [Concomitant]
     Active Substance: INSULIN LISPRO
     Indication: TYPE 1 DIABETES MELLITUS
     Dosage: 40 U, QD
     Route: 064
     Dates: start: 20161124, end: 20170725
  3. TRESIBA [Suspect]
     Active Substance: INSULIN DEGLUDEC
     Indication: TYPE 1 DIABETES MELLITUS
     Dosage: 38 (UNITS NOT REPORTED)
     Route: 064
     Dates: start: 20161124, end: 20170123
  4. NOVORAPID [Suspect]
     Active Substance: INSULIN ASPART
     Indication: TYPE 1 DIABETES MELLITUS
     Dosage: UNK
     Route: 064
     Dates: end: 20170725
  5. NAPROXEN. [Concomitant]
     Active Substance: NAPROXEN
     Dosage: 500 MG, BID
     Route: 064
  6. LANSOPRAZOLE. [Concomitant]
     Active Substance: LANSOPRAZOLE
     Dosage: 15MG
     Route: 064
     Dates: start: 20161124
  7. GABAPENTIN. [Concomitant]
     Active Substance: GABAPENTIN
     Dosage: 300 MG, TID
     Route: 064
     Dates: start: 20161124

REACTIONS (5)
  - Vascular malformation [Unknown]
  - Foetal exposure during pregnancy [Recovered/Resolved]
  - Heterotaxia [Unknown]
  - Premature baby [Unknown]
  - Bradycardia foetal [Unknown]

NARRATIVE: CASE EVENT DATE: 20161124
